FAERS Safety Report 11945111 (Version 8)
Quarter: 2017Q2

REPORT INFORMATION
  Report Type: Report from Study
  Country: FR (occurrence: FR)
  Receive Date: 20160125
  Receipt Date: 20170530
  Transmission Date: 20170829
  Serious: Yes (Hospitalization, Other)
  Sender: FDA-Public Use
  Company Number: FR-JNJFOC-20160117739

PATIENT
  Age: 73 Year
  Sex: Male
  Weight: 53 kg

DRUGS (5)
  1. DICLOFENAC [Concomitant]
     Active Substance: DICLOFENAC
     Dosage: (AT INCLUSION)
     Route: 065
  2. SIMPONI [Suspect]
     Active Substance: GOLIMUMAB
     Indication: ANKYLOSING SPONDYLITIS
     Route: 058
     Dates: start: 201704
  3. SIMPONI [Suspect]
     Active Substance: GOLIMUMAB
     Indication: ANKYLOSING SPONDYLITIS
     Dosage: INJECTION 18
     Route: 058
     Dates: start: 20170308
  4. SIMPONI [Suspect]
     Active Substance: GOLIMUMAB
     Indication: ANKYLOSING SPONDYLITIS
     Dosage: INJECTION 19
     Route: 058
     Dates: start: 20170508
  5. SIMPONI [Suspect]
     Active Substance: GOLIMUMAB
     Indication: ANKYLOSING SPONDYLITIS
     Dosage: PEN
     Route: 058
     Dates: start: 20150331

REACTIONS (5)
  - Cataract [Unknown]
  - Retinal detachment [Recovering/Resolving]
  - Influenza [Unknown]
  - Rhinitis [Unknown]
  - Mumps [Unknown]

NARRATIVE: CASE EVENT DATE: 201512
